FAERS Safety Report 8230768-8 (Version None)
Quarter: 2012Q1

REPORT INFORMATION
  Report Type: 
  Country: None (occurrence: None)
  Receive Date: 20120323
  Receipt Date: 20120315
  Transmission Date: 20120608
  Serious: Yes (Hospitalization, Other)
  Sender: FDA-Public Use
  Company Number: US-BAYER-2010-004483

PATIENT
  Age: 46 Year
  Sex: Female

DRUGS (7)
  1. YAZ [Suspect]
     Indication: ENDOMETRIAL HYPERTROPHY
  2. YAZ [Suspect]
     Indication: PREMENSTRUAL SYNDROME
     Dosage: UNK
     Route: 048
     Dates: start: 20080213, end: 20081210
  3. YAZ [Suspect]
     Indication: DYSMENORRHOEA
  4. KLONOPIN [Concomitant]
     Indication: CONVULSION
     Dosage: UNK
     Dates: start: 19980101
  5. CARDIZEM CD [Concomitant]
  6. YAZ [Suspect]
     Indication: MENSTRUATION IRREGULAR
  7. LEVOTHYROXINE SODIUM [Concomitant]

REACTIONS (5)
  - DEEP VEIN THROMBOSIS [None]
  - THROMBOSIS [None]
  - PULMONARY INFARCTION [None]
  - PULMONARY EMBOLISM [None]
  - PAIN [None]
